FAERS Safety Report 17985119 (Version 3)
Quarter: 2021Q3

REPORT INFORMATION
  Report Type: Report from Study
  Country: US (occurrence: US)
  Receive Date: 20200706
  Receipt Date: 20210804
  Transmission Date: 20211014
  Serious: Yes (Hospitalization, Other)
  Sender: FDA-Public Use
  Company Number: US-GLAXOSMITHKLINE-US2020GSK119959

PATIENT
  Age: 38 Year
  Sex: Female
  Weight: 81.19 kg

DRUGS (7)
  1. ZYRTEC [Concomitant]
     Active Substance: CETIRIZINE HYDROCHLORIDE
     Indication: MULTIPLE ALLERGIES
     Dosage: 1.5 DF, QD (PILL)
     Route: 048
     Dates: start: 20200426, end: 20200708
  2. ELDERBERRY [Concomitant]
     Active Substance: HERBALS
     Indication: ASTHMA
     Dosage: 15 ML, QD
     Route: 048
     Dates: start: 20200426, end: 20200530
  3. MARIJUANA [Concomitant]
     Active Substance: CANNABIS SATIVA SUBSP. INDICA TOP
     Indication: PRODUCT USED FOR UNKNOWN INDICATION
     Dosage: 1 DF, QD (SERVE)
     Route: 048
     Dates: start: 20200517, end: 20200517
  4. DYMISTA [Concomitant]
     Active Substance: AZELASTINE HYDROCHLORIDE\FLUTICASONE PROPIONATE
     Indication: ASTHMA
     Dosage: 2 PUFF(S), BID
     Route: 055
     Dates: start: 20180701, end: 20200719
  5. SINGULAIR [Concomitant]
     Active Substance: MONTELUKAST SODIUM
     Indication: ASTHMA
     Dosage: 10 MG, QD
     Route: 048
     Dates: start: 20100701, end: 20200719
  6. MEPOLIZUMAB [Suspect]
     Active Substance: MEPOLIZUMAB
     Indication: ASTHMA
     Dosage: 100 MG, Z (MONTHLY)
     Route: 058
     Dates: start: 20170701, end: 20200719
  7. DULERA [Concomitant]
     Active Substance: FORMOTEROL FUMARATE DIHYDRATE\MOMETASONE FUROATE
     Indication: ASTHMA
     Dosage: 2 PUFF(S), BID 200MCG?5MCG
     Route: 055
     Dates: start: 20160701, end: 20200719

REACTIONS (7)
  - Sepsis [Unknown]
  - Staphylococcal bacteraemia [Recovered/Resolved]
  - Abortion spontaneous [Unknown]
  - Abortion incomplete [Unknown]
  - Endometriosis [Unknown]
  - Exposure during pregnancy [Unknown]
  - Uterine dilation and curettage [Unknown]

NARRATIVE: CASE EVENT DATE: 20200629
